FAERS Safety Report 4351407-2 (Version None)
Quarter: 2004Q2

REPORT INFORMATION
  Report Type: 
  Country: None (occurrence: None)
  Receive Date: 20040430
  Receipt Date: 20040430
  Transmission Date: 20050107
  Serious: No
  Sender: FDA-Public Use
  Company Number: None

PATIENT
  Age: 50 Year
  Sex: 0
  Weight: 71.6683 kg

DRUGS (11)
  1. TARCEVA [Suspect]
     Indication: PANCREATIC CARCINOMA METASTATIC
     Dosage: 150 MG PO QD
     Route: 048
     Dates: start: 20040421, end: 20040427
  2. CAPECITABINE [Suspect]
     Indication: PANCREATIC CARCINOMA METASTATIC
     Dosage: 1950 MG PO IN DIVIDED DOSES QD 2000 MG PO IN DIVIDED DOES QD
     Route: 048
     Dates: start: 20040421, end: 20040427
  3. CAPECITABINE [Suspect]
     Indication: PANCREATIC CARCINOMA METASTATIC
     Dosage: 1950 MG PO IN DIVIDED DOSES QD 2000 MG PO IN DIVIDED DOES QD
     Route: 048
     Dates: start: 20040428
  4. OXYCONDONE [Concomitant]
  5. SENNA [Concomitant]
  6. LORTAB [Concomitant]
  7. ZOFRAN [Concomitant]
  8. CLINDAMYCIN HCL [Concomitant]
  9. DILAUDID [Concomitant]
  10. DURAGESIC [Concomitant]
  11. KEFLEX [Concomitant]

REACTIONS (4)
  - FATIGUE [None]
  - PULMONARY EMBOLISM [None]
  - RASH [None]
  - WEIGHT DECREASED [None]
